FAERS Safety Report 10178557 (Version 5)
Quarter: 2014Q3

REPORT INFORMATION
  Report Type: Spontaneous
  Country: US (occurrence: US)
  Receive Date: 20140519
  Receipt Date: 20140825
  Transmission Date: 20150326
  Serious: Yes (Other)
  Sender: FDA-Public Use
  Company Number: US-009507513-1405USA003530

PATIENT
  Age: 25 Year
  Sex: Female
  Weight: 103.4 kg

DRUGS (3)
  1. NEXPLANON [Suspect]
     Active Substance: ETONOGESTREL
     Dosage: 1 DF, LEFT ARM
     Route: 059
     Dates: start: 20140325
  2. NEXPLANON [Suspect]
     Active Substance: ETONOGESTREL
     Indication: CONTRACEPTION
     Dosage: 1 DF, IN LEFT ARM
     Route: 059
     Dates: start: 20140211, end: 20140315
  3. METOPROLOL [Concomitant]
     Active Substance: METOPROLOL
     Indication: HYPERTENSION
     Dosage: DOSAGE FORM-PILL,TOTAL DAILY DOSE-25 MG
     Route: 048
     Dates: start: 2012

REACTIONS (11)
  - Implant site reaction [Unknown]
  - Drug prescribing error [Unknown]
  - Haemorrhage [Recovered/Resolved]
  - Exophthalmos [Unknown]
  - Scab [Unknown]
  - Rash [Unknown]
  - Implant site abscess [Recovered/Resolved]
  - Implant site ulcer [Unknown]
  - Device expulsion [Recovered/Resolved]
  - Erythema [Unknown]
  - Dry skin [Unknown]

NARRATIVE: CASE EVENT DATE: 2014
